FAERS Safety Report 6583210-7 (Version None)
Quarter: 2010Q1

REPORT INFORMATION
  Report Type: 
  Country: None (occurrence: None)
  Receive Date: 20100216
  Receipt Date: 20100203
  Transmission Date: 20100710
  Serious: Yes (Other)
  Sender: FDA-Public Use
  Company Number: JP-ROCHE-685152

PATIENT
  Age: 63 Year
  Sex: Female

DRUGS (5)
  1. TAMIFLU [Suspect]
     Indication: INFLUENZA
     Route: 048
  2. LEVODOPA [Concomitant]
  3. SIFROL [Concomitant]
     Dosage: DRUG NAME REPORTED AS BI_SIFROL
     Route: 048
  4. SELEGILINE HYDROCHLORIDE [Concomitant]
     Route: 048
  5. ZONISAMIDE [Concomitant]
     Route: 048

REACTIONS (2)
  - ABNORMAL BEHAVIOUR [None]
  - DYSKINESIA [None]
